FAERS Safety Report 4792464-9 (Version None)
Quarter: 2005Q4

REPORT INFORMATION
  Report Type: 
  Country: None (occurrence: None)
  Receive Date: 20051010
  Receipt Date: 20050830
  Transmission Date: 20060501
  Serious: Yes (Hospitalization)
  Sender: FDA-Public Use
  Company Number: GB-GLAXOSMITHKLINE-B0392134A

PATIENT
  Age: 55 Year
  Sex: Female
  Weight: 60 kg

DRUGS (5)
  1. SEROXAT [Suspect]
     Indication: DEPRESSION
     Dosage: 40MG PER DAY
     Route: 048
     Dates: start: 20041201, end: 20050601
  2. PARACETAMOL [Suspect]
     Route: 065
  3. ANTIDEPRESSANT (UNSPECIFIED) [Suspect]
     Route: 065
  4. TRANQUILLISER [Concomitant]
     Route: 065
  5. DIAZEPAM [Concomitant]
     Indication: AGITATION
     Dosage: 10MG AT NIGHT
     Route: 065
     Dates: start: 20050201, end: 20050501

REACTIONS (27)
  - ADJUSTMENT DISORDER [None]
  - AGITATION [None]
  - ALCOHOLISM [None]
  - ALOPECIA [None]
  - ANGER [None]
  - BLOOD CORTISOL INCREASED [None]
  - CONFUSIONAL STATE [None]
  - DECREASED APPETITE [None]
  - DEMENTIA [None]
  - DEPRESSION [None]
  - DEPRESSIVE SYMPTOM [None]
  - EMOTIONAL DISORDER [None]
  - FEELING ABNORMAL [None]
  - GENERAL PHYSICAL HEALTH DETERIORATION [None]
  - HALLUCINATION [None]
  - HALLUCINATION, AUDITORY [None]
  - HYPERHIDROSIS [None]
  - INCOHERENT [None]
  - INSOMNIA [None]
  - IRRITABILITY [None]
  - LIVER DISORDER [None]
  - MANIA [None]
  - MOOD SWINGS [None]
  - PERSONALITY CHANGE [None]
  - SUICIDAL IDEATION [None]
  - SUICIDE ATTEMPT [None]
  - WEIGHT DECREASED [None]
